FAERS Safety Report 19032017 (Version 2)
Quarter: 2021Q1

REPORT INFORMATION
  Report Type: Spontaneous
  Country: CA (occurrence: CA)
  Receive Date: 20210319
  Receipt Date: 20210329
  Transmission Date: 20210420
  Serious: Yes (Hospitalization, Other)
  Sender: FDA-Public Use
  Company Number: CA-PFIZER INC-2021289008

PATIENT
  Age: 21 Year
  Sex: Male

DRUGS (1)
  1. DEPO?TESTOSTERONE [Suspect]
     Active Substance: TESTOSTERONE CYPIONATE
     Dosage: 1 ML, EVERY 2 WEEKS
     Route: 030
     Dates: start: 202008, end: 20210301

REACTIONS (6)
  - Inflammation [Unknown]
  - Loss of consciousness [Unknown]
  - Seizure [Unknown]
  - Head injury [Unknown]
  - Headache [Unknown]
  - Erythema [Unknown]
